FAERS Safety Report 9215368 (Version 2)
Quarter: 2013Q2

REPORT INFORMATION
  Report Type: Other
  Country: IT (occurrence: IT)
  Receive Date: 20130405
  Receipt Date: 20130425
  Transmission Date: 20140414
  Serious: Yes (Death)
  Sender: FDA-Public Use
  Company Number: IT-ACTAVIS-2013-06174

PATIENT
  Age: 65 Year
  Sex: Male
  Weight: 76 kg

DRUGS (13)
  1. PACLITAXEL (UNKNOWN) [Suspect]
     Indication: LUNG NEOPLASM
     Dosage: 305 MG, 1 TRIMESTER
     Route: 042
     Dates: start: 20130221, end: 20130315
  2. TRIMETON                           /00072502/ [Concomitant]
     Indication: PREMEDICATION
     Dosage: 1 UNK, UNK
     Route: 065
     Dates: start: 20130315, end: 20130315
  3. ZANTAC [Concomitant]
     Indication: PREMEDICATION
     Dosage: 50 MG, UNK
     Route: 065
     Dates: start: 20130315, end: 20130315
  4. GRANISETRON KABI [Concomitant]
     Indication: PREMEDICATION
     Dosage: 1 MG, UNK
     Route: 065
     Dates: start: 20130315, end: 20130315
  5. DESAMETASONE FOSF                  /00016002/ [Concomitant]
     Indication: PREMEDICATION
     Dosage: 8 MG, UNK
     Route: 065
     Dates: start: 20130315, end: 20130315
  6. EMEND                              /01627301/ [Concomitant]
     Indication: PREMEDICATION
     Dosage: UNK
     Route: 065
     Dates: start: 20130315, end: 20130315
  7. SOLDESAM [Concomitant]
     Indication: PRODUCT USED FOR UNKNOWN INDICATION
     Dosage: 64 GTT DROPS
     Route: 065
  8. TARGIN [Concomitant]
     Indication: PRODUCT USED FOR UNKNOWN INDICATION
     Dosage: 1 DF
     Route: 065
  9. DICLOREUM ACTIGEL [Concomitant]
     Indication: PRODUCT USED FOR UNKNOWN INDICATION
     Dosage: 1 DF, UNK
     Route: 065
  10. STILNOX [Concomitant]
     Indication: PRODUCT USED FOR UNKNOWN INDICATION
     Dosage: 1 DF, UNK
     Route: 065
  11. ORAMORPH [Concomitant]
     Indication: PRODUCT USED FOR UNKNOWN INDICATION
     Route: 065
  12. PLASIL [Concomitant]
     Indication: PRODUCT USED FOR UNKNOWN INDICATION
     Dosage: 1 DF, UNK
     Route: 065
  13. LOSEC                              /00661201/ [Concomitant]
     Indication: PRODUCT USED FOR UNKNOWN INDICATION
     Dosage: 1 UNK, UNK
     Route: 065

REACTIONS (3)
  - Pulmonary embolism [Fatal]
  - Altered state of consciousness [Fatal]
  - Cardiac arrest [Fatal]
